FAERS Safety Report 6438515-7 (Version None)
Quarter: 2009Q4

REPORT INFORMATION
  Report Type: 
  Country: None (occurrence: None)
  Receive Date: 20091112
  Receipt Date: 20091103
  Transmission Date: 20100525
  Serious: Yes (Other)
  Sender: FDA-Public Use
  Company Number: US-AMGEN-US373165

PATIENT
  Age: 14 Year
  Sex: Female
  Weight: 75 kg

DRUGS (4)
  1. ENBREL [Suspect]
     Indication: JUVENILE ARTHRITIS
     Route: 058
     Dates: start: 20080913
  2. METHOTREXATE SODIUM [Suspect]
     Indication: JUVENILE ARTHRITIS
     Route: 058
     Dates: start: 20080913
  3. FOLIC ACID [Concomitant]
     Route: 048
  4. MOBIC [Concomitant]
     Route: 048

REACTIONS (1)
  - DYSPHORIA [None]
